FAERS Safety Report 13832224 (Version 1)
Quarter: 2017Q3

REPORT INFORMATION
  Report Type: Spontaneous
  Country: US (occurrence: US)
  Receive Date: 20170803
  Receipt Date: 20170803
  Transmission Date: 20171127
  Serious: No
  Sender: FDA-Public Use
  Company Number: US-ROCHE-702300

PATIENT
  Age: 65 Year
  Sex: Female

DRUGS (4)
  1. CALCIUM [Concomitant]
     Active Substance: CALCIUM
     Route: 065
  2. DEXLANSOPRAZOLE [Concomitant]
     Active Substance: DEXLANSOPRAZOLE
     Dosage: DRUG REPORTED AS KAPADEX
     Route: 065
  3. BONIVA [Suspect]
     Active Substance: IBANDRONATE SODIUM
     Indication: OSTEOPOROSIS
     Route: 048
     Dates: start: 2008, end: 2009
  4. ASPIRIN. [Concomitant]
     Active Substance: ASPIRIN
     Dosage: DRUG REPORTED AS BABY ASPIRIN
     Route: 065

REACTIONS (1)
  - Osteoporosis [Unknown]
